FAERS Safety Report 17642695 (Version 1)
Quarter: 2020Q2

REPORT INFORMATION
  Report Type: Spontaneous
  Country: US (occurrence: US)
  Receive Date: 20200408
  Receipt Date: 20200408
  Transmission Date: 20200713
  Serious: No
  Sender: FDA-Public Use
  Company Number: US-ALLERGAN-1928036US

PATIENT
  Age: 47 Year
  Sex: Female
  Weight: 78.91 kg

DRUGS (5)
  1. IBUPROFEN. [Concomitant]
     Active Substance: IBUPROFEN
     Indication: PRODUCT USED FOR UNKNOWN INDICATION
     Dosage: UNK
     Route: 065
  2. LILETTA [Suspect]
     Active Substance: LEVONORGESTREL
     Indication: CONTRACEPTION
     Dosage: 52 MG, SINGLE
     Route: 015
     Dates: start: 20190627, end: 20190702
  3. GLUCOSAMINE + CHONDROITIN [Concomitant]
     Active Substance: CHONDROITIN SULFATE (BOVINE)\GLUCOSAMINE HYDROCHLORIDE
     Indication: PRODUCT USED FOR UNKNOWN INDICATION
     Dosage: UNK
     Route: 065
  4. LILETTA [Suspect]
     Active Substance: LEVONORGESTREL
     Indication: MENORRHAGIA
  5. LILETTA [Suspect]
     Active Substance: LEVONORGESTREL
     Indication: MUSCLE SPASMS

REACTIONS (9)
  - Pain [Unknown]
  - Dizziness [Recovered/Resolved]
  - Presyncope [Recovered/Resolved]
  - Haemorrhage [Unknown]
  - Fatigue [Recovered/Resolved]
  - Off label use [Unknown]
  - Hypersensitivity [Recovered/Resolved]
  - Medical device discomfort [Recovered/Resolved]
  - Rash pruritic [Unknown]

NARRATIVE: CASE EVENT DATE: 20190702
